FAERS Safety Report 5115393-X (Version None)
Quarter: 2006Q3

REPORT INFORMATION
  Report Type: 
  Country: None (occurrence: None)
  Receive Date: 20060922
  Receipt Date: 20060911
  Transmission Date: 20061208
  Serious: Yes (Life-Threatening)
  Sender: FDA-Public Use
  Company Number: 2006110629

PATIENT
  Age: 61 Year
  Sex: Female

DRUGS (8)
  1. AMLODIPINE [Suspect]
     Dosage: ORAL
     Route: 048
     Dates: end: 20060725
  2. ATORVASTATIN CALCIUM [Suspect]
     Dosage: ORAL
     Route: 048
     Dates: end: 20060725
  3. QUINAPRIL HCL [Suspect]
     Dosage: 20 MG/12.5 MG, ORAL
     Route: 048
     Dates: end: 20060725
  4. METFORMIN HCL [Suspect]
     Dosage: ORAL
     Route: 048
     Dates: end: 20060725
  5. NOVONORM (REPAGLINIDE) [Suspect]
     Dosage: ORAL
     Route: 048
     Dates: end: 20060725
  6. DIGOXIN [Suspect]
     Dosage: (0.25 MG), ORAL
     Route: 048
     Dates: end: 20060725
  7. INSULINE NORDISK (INSULIN HUMAN) [Concomitant]
  8. LEVOTHYROXINE SODIQUE (LEVOTHYROXINE SODIUM) [Concomitant]

REACTIONS (5)
  - DIARRHOEA [None]
  - DRUG TOXICITY [None]
  - LACTIC ACIDOSIS [None]
  - RENAL FAILURE ACUTE [None]
  - VOMITING [None]
